FAERS Safety Report 6206304-4 (Version None)
Quarter: 2009Q2

REPORT INFORMATION
  Report Type: 
  Country: None (occurrence: None)
  Receive Date: 20090528
  Receipt Date: 20090526
  Transmission Date: 20091009
  Serious: Yes (Hospitalization)
  Sender: FDA-Public Use
  Company Number: RO-ROCHE-634571

PATIENT
  Age: 60 Year
  Sex: Female

DRUGS (2)
  1. PEGASYS [Suspect]
     Dosage: DOSING FREQ: Q WEEKLY
     Route: 058
     Dates: start: 20070601, end: 20080501
  2. COPEGUS [Concomitant]
     Route: 048
     Dates: start: 20070601, end: 20080501

REACTIONS (2)
  - AMYOTROPHY [None]
  - MYOSITIS [None]
